FAERS Safety Report 5941393-3 (Version None)
Quarter: 2008Q4

REPORT INFORMATION
  Report Type: 
  Country: None (occurrence: None)
  Receive Date: 20081103
  Receipt Date: 20081017
  Transmission Date: 20090506
  Serious: Yes (Other)
  Sender: FDA-Public Use
  Company Number: DSA_32598_2008

PATIENT
  Sex: Male

DRUGS (2)
  1. CARDIZEM [Suspect]
     Indication: HYPERTENSION
     Dosage: (120 MG BID)
  2. AMILORIDE HCL AND HYDROCHLOROTHIAZIDE [Concomitant]

REACTIONS (7)
  - DIZZINESS [None]
  - FALL [None]
  - PRODUCTIVE COUGH [None]
  - SEXUAL DYSFUNCTION [None]
  - SLEEP DISORDER [None]
  - URINE ANALYSIS ABNORMAL [None]
  - WOUND [None]
